FAERS Safety Report 8265403-6 (Version None)
Quarter: 2012Q2

REPORT INFORMATION
  Report Type: 
  Country: None (occurrence: None)
  Receive Date: 20120406
  Receipt Date: 20120403
  Transmission Date: 20120825
  Serious: Yes (Hospitalization)
  Sender: FDA-Public Use
  Company Number: US-PFIZER INC-2012067525

PATIENT
  Sex: Female
  Weight: 37.188 kg

DRUGS (11)
  1. GABAPENTIN [Concomitant]
     Dosage: 200 MG, EVERY DAY
  2. NOVOLOG [Concomitant]
     Dosage: UNK
  3. LANTUS [Concomitant]
     Dosage: UNK
  4. TRICOR [Concomitant]
     Dosage: UNK
  5. SUTENT [Suspect]
     Indication: RENAL CELL CARCINOMA
     Dosage: 50 MG, UNK
     Dates: start: 20120306, end: 20120312
  6. VITAMIN D [Concomitant]
     Dosage: UNK
  7. LIPITOR [Concomitant]
     Dosage: UNK
  8. STOOL SOFTENER [Concomitant]
     Dosage: UNK
  9. LEVOTHYROXINE [Concomitant]
     Dosage: UNK
  10. VITA-B [Concomitant]
     Dosage: UNK, DAILY
  11. ALPRAZOLAM [Concomitant]
     Dosage: UNK

REACTIONS (12)
  - DIARRHOEA [None]
  - SKIN BURNING SENSATION [None]
  - VOMITING [None]
  - ABDOMINAL PAIN [None]
  - PAIN [None]
  - ORAL PAIN [None]
  - WEIGHT DECREASED [None]
  - VIRAL INFECTION [None]
  - DEHYDRATION [None]
  - NAUSEA [None]
  - HYPERTENSION [None]
  - URINE COLOUR ABNORMAL [None]
